FAERS Safety Report 15504568 (Version 1)
Quarter: 2018Q4

REPORT INFORMATION
  Report Type: Spontaneous
  Country: US (occurrence: US)
  Receive Date: 20181016
  Receipt Date: 20181016
  Transmission Date: 20190205
  Serious: Yes (Hospitalization)
  Sender: FDA-Public Use
  Company Number: None

PATIENT
  Sex: Male

DRUGS (4)
  1. HUMIRA [Suspect]
     Active Substance: ADALIMUMAB
     Indication: COLITIS ULCERATIVE
     Dosage: ?          OTHER FREQUENCY:EVERYOTHER WEEK;?
     Route: 058
     Dates: start: 20160430
  2. FOLIC ACID 1MG [Concomitant]
  3. VITAMIN B-12 1000MCG [Concomitant]
  4. VITAMIN B-1 250MG [Concomitant]

REACTIONS (1)
  - Hospitalisation [None]
